FAERS Safety Report 9675837 (Version 3)
Quarter: 2014Q1

REPORT INFORMATION
  Report Type: Spontaneous
  Country: US (occurrence: US)
  Receive Date: 20131107
  Receipt Date: 20140305
  Transmission Date: 20141002
  Serious: Yes (Other)
  Sender: FDA-Public Use
  Company Number: US-GLAXOSMITHKLINE-A1048552A

PATIENT
  Age: 66 Year
  Sex: Female
  Weight: 76.8 kg

DRUGS (42)
  1. ADVAIR [Suspect]
     Indication: RESPIRATORY DISORDER
     Route: 065
  2. FLONASE [Suspect]
     Indication: RESPIRATORY DISORDER
     Route: 045
  3. RYTHMOL SR [Suspect]
     Indication: RESPIRATORY DISORDER
     Dosage: 225MG THREE TIMES PER DAY
     Route: 065
  4. ATROVENT [Suspect]
     Indication: PRODUCT USED FOR UNKNOWN INDICATION
     Route: 065
  5. SINGULAIR [Suspect]
     Indication: ASTHMA
     Route: 065
  6. MEPHYTON [Suspect]
     Indication: PRODUCT USED FOR UNKNOWN INDICATION
     Route: 065
  7. ALLERGY SHOT [Suspect]
     Indication: PRODUCT USED FOR UNKNOWN INDICATION
     Route: 065
  8. ACIPHEX [Concomitant]
  9. ALBUTEROL SULFATE [Concomitant]
  10. ALDACTONE [Concomitant]
  11. BENADRYL ALLERGY [Concomitant]
  12. BENTYL [Concomitant]
  13. CITRACAL + D [Concomitant]
  14. COUMADIN [Concomitant]
  15. CREON [Concomitant]
  16. DIAZEPAM [Concomitant]
  17. VITAMIN C [Concomitant]
  18. VITAMIN E [Concomitant]
  19. FIORICET W/CODEINE [Concomitant]
  20. FOLIC ACID [Concomitant]
  21. LASIX [Concomitant]
  22. MUCINEX [Concomitant]
  23. NORCO [Concomitant]
  24. POTASSIUM CHLORIDE [Concomitant]
  25. PRAVACHOL [Concomitant]
  26. QNASL [Concomitant]
  27. QVAR [Concomitant]
  28. RECLAST [Concomitant]
  29. SIMETHICONE [Concomitant]
  30. SLOW FE [Concomitant]
  31. SYNTHROID [Concomitant]
  32. TOPROL XL [Concomitant]
  33. TYLENOL WITH CODEINE [Concomitant]
  34. VALACYCLOVIR [Concomitant]
  35. VANCOMYCIN [Concomitant]
  36. VITAMIN B-12 [Concomitant]
  37. WOMENS COMPLETE VITAMINS + MINERAL [Concomitant]
  38. ZOFRAN [Concomitant]
  39. ZOLOFT [Concomitant]
  40. PNEUMOVAX [Concomitant]
     Dates: start: 20110620
  41. INFLUENZA VACCINE [Concomitant]
     Dates: start: 20130916
  42. IVIG [Concomitant]

REACTIONS (15)
  - Road traffic accident [Unknown]
  - Bronchitis [Unknown]
  - Asthma [Unknown]
  - Arrhythmia [Unknown]
  - Herpes zoster [Unknown]
  - Respiratory fume inhalation disorder [Unknown]
  - Drug hypersensitivity [Unknown]
  - Cough [Not Recovered/Not Resolved]
  - Eye pruritus [Not Recovered/Not Resolved]
  - Throat irritation [Not Recovered/Not Resolved]
  - Rhinorrhoea [Not Recovered/Not Resolved]
  - Limb injury [Not Recovered/Not Resolved]
  - Pulmonary mass [Not Recovered/Not Resolved]
  - Hypersensitivity [Not Recovered/Not Resolved]
  - Oxygen saturation decreased [Unknown]
